FAERS Safety Report 8187255-5 (Version None)
Quarter: 2012Q1

REPORT INFORMATION
  Report Type: 
  Country: None (occurrence: None)
  Receive Date: 20120306
  Receipt Date: 20120229
  Transmission Date: 20120608
  Serious: Yes (Other)
  Sender: FDA-Public Use
  Company Number: DE-ROCHE-1044664

PATIENT
  Sex: Male

DRUGS (2)
  1. MARCUMAR [Suspect]
     Indication: PRODUCT USED FOR UNKNOWN INDICATION
     Dates: end: 20120225
  2. XELODA [Suspect]
     Indication: HEPATIC NEOPLASM MALIGNANT
     Dates: start: 20120101

REACTIONS (3)
  - GASTRIC HAEMORRHAGE [None]
  - DRUG INTERACTION [None]
  - PROTHROMBIN TIME PROLONGED [None]
